FAERS Safety Report 8347690-9 (Version None)
Quarter: 2012Q2

REPORT INFORMATION
  Report Type: 
  Country: None (occurrence: None)
  Receive Date: 20120509
  Receipt Date: 20120501
  Transmission Date: 20120825
  Serious: No
  Sender: FDA-Public Use
  Company Number: US-ROXANE LABORATORIES, INC.-2012-RO-01169RO

PATIENT
  Age: 55 Year
  Sex: Female

DRUGS (5)
  1. RAPAMUNE [Concomitant]
  2. INSULIN [Concomitant]
     Indication: DIABETES MELLITUS
  3. CLONIDINE [Concomitant]
  4. ASPIRIN [Concomitant]
  5. MYCOPHENOLATE MOFETIL [Suspect]
     Indication: PROPHYLAXIS AGAINST TRANSPLANT REJECTION
     Dosage: 500 MG
     Route: 048
     Dates: start: 20120315, end: 20120501

REACTIONS (4)
  - FATIGUE [None]
  - PAIN [None]
  - OEDEMA PERIPHERAL [None]
  - HEART RATE INCREASED [None]
